FAERS Safety Report 7879457-X (Version None)
Quarter: 2011Q4

REPORT INFORMATION
  Report Type: 
  Country: None (occurrence: None)
  Receive Date: 20111101
  Receipt Date: 20111020
  Transmission Date: 20120403
  Serious: Yes (Other)
  Sender: FDA-Public Use
  Company Number: US-BAYER-2011-006760

PATIENT
  Age: 66 Year
  Sex: Male
  Weight: 97.506 kg

DRUGS (30)
  1. TRASYLOL [Suspect]
     Indication: MITRAL VALVE REPAIR
     Dosage: 200 ML, UNK, PRIME
     Route: 042
     Dates: start: 20030324, end: 20030324
  2. LOPRESSOR [Concomitant]
     Route: 048
  3. MAGNESIUM SULFATE [Concomitant]
     Dosage: 2 G, UNK
     Route: 042
  4. PROTAMINE SULFATE [Concomitant]
     Dosage: 200 MG, UNK
     Route: 042
     Dates: start: 20030324, end: 20030324
  5. AMIODARONE HCL [Concomitant]
     Dosage: 150 MG, UNK
     Route: 042
     Dates: start: 20030324
  6. LEVOPHED [Concomitant]
     Route: 042
  7. SODIUM BICARBONATE [Concomitant]
     Dosage: 50 MEQ PRIME
     Dates: start: 20030324, end: 20030324
  8. FRESH FROZEN PLASMA [Concomitant]
     Dosage: 5 U, ONCE
     Route: 042
     Dates: start: 20030324
  9. TRASYLOL [Suspect]
     Indication: CARDIAC ANEURYSM
     Dosage: UNK
     Route: 042
     Dates: start: 20030624
  10. MOXIFLOXACIN [Concomitant]
     Dosage: 400 MG, UNK
     Route: 048
     Dates: start: 20030318
  11. PROTAMINE SULFATE [Concomitant]
     Dosage: 50 MG, UNK
     Route: 042
     Dates: start: 20030324, end: 20030324
  12. VERSED [Concomitant]
     Dosage: 2 MG, UNK
     Route: 042
  13. HEPARIN [Concomitant]
     Dosage: 10000 U PRIME
     Route: 042
     Dates: start: 20030324, end: 20030324
  14. PLATELETS [Concomitant]
     Dosage: 2 PACKS
     Route: 042
     Dates: start: 20030324
  15. LASIX [Concomitant]
     Dosage: 20 MG, UNK
     Route: 048
  16. LASIX [Concomitant]
     Dosage: 20 MG, UNK
     Route: 042
  17. HEPARIN [Concomitant]
     Dosage: 30000 U, UNK
     Route: 042
     Dates: start: 20030324, end: 20030324
  18. ANCEF [Concomitant]
     Dosage: 1 G, UNK
     Route: 042
  19. VANCOMYCIN HCL [Concomitant]
     Dosage: 1 G, UNK
     Route: 042
  20. RED BLOOD CELLS [Concomitant]
     Dosage: 1 U, ONCE
     Route: 042
     Dates: start: 20030324
  21. EPINEPHRINE [Concomitant]
     Route: 042
  22. TRASYLOL [Suspect]
     Indication: CORONARY ARTERY BYPASS
     Dosage: 1 ML, UNK, TEST DOSE
     Route: 042
     Dates: start: 20030324, end: 20030324
  23. MAGNESIUM SULFATE [Concomitant]
     Route: 048
  24. COLACE [Concomitant]
     Dosage: 100 MG, BID
     Route: 048
  25. ACETYLSALICYLIC ACID SRT [Concomitant]
     Dosage: 325 MG, UNK
     Route: 048
  26. TRASYLOL [Suspect]
     Indication: ANEURYSM REPAIR
     Dosage: 200 ML, UNK, LOADING DOSE (SLOW)
     Route: 042
     Dates: start: 20030324, end: 20030324
  27. LOPRESSOR [Concomitant]
     Route: 042
  28. FENTANYL-100 [Concomitant]
     Route: 042
  29. MILRINONE [Concomitant]
     Route: 042
  30. OMNIPAQUE 140 [Concomitant]
     Indication: CATHETERISATION CARDIAC
     Dosage: 120 ML, UNK
     Dates: start: 20030318

REACTIONS (14)
  - MENTAL DISORDER [None]
  - RENAL INJURY [None]
  - UNEVALUABLE EVENT [None]
  - MULTI-ORGAN FAILURE [None]
  - MYOCARDIAL INFARCTION [None]
  - FEAR [None]
  - PAIN [None]
  - RENAL FAILURE [None]
  - EMOTIONAL DISTRESS [None]
  - RENAL IMPAIRMENT [None]
  - CEREBROVASCULAR ACCIDENT [None]
  - STRESS [None]
  - ANXIETY [None]
  - INJURY [None]
